FAERS Safety Report 12141016 (Version 1)
Quarter: 2016Q1

REPORT INFORMATION
  Report Type: Spontaneous
  Country: US (occurrence: US)
  Receive Date: 20160303
  Receipt Date: 20160303
  Transmission Date: 20160526
  Serious: No
  Sender: FDA-Public Use
  Company Number: US-MALLINCKRODT-T201600105

PATIENT
  Sex: Male

DRUGS (1)
  1. RESTORIL [Suspect]
     Active Substance: TEMAZEPAM
     Indication: PRODUCT USED FOR UNKNOWN INDICATION
     Dosage: 30 MG, UNK FREQUENCY
     Route: 065

REACTIONS (6)
  - Middle insomnia [Unknown]
  - Confusional state [Unknown]
  - Drug ineffective [Unknown]
  - Somnolence [Unknown]
  - Inappropriate schedule of drug administration [Unknown]
  - Feeling abnormal [Unknown]
